FAERS Safety Report 8982172 (Version 3)
Quarter: 2013Q1

REPORT INFORMATION
  Report Type: Spontaneous
  Country: CA (occurrence: CA)
  Receive Date: 20121222
  Receipt Date: 20130227
  Transmission Date: 20140127
  Serious: Yes (Other)
  Sender: FDA-Public Use
  Company Number: CA-BAUSCH-BL-2012-002253

PATIENT
  Age: 31 None
  Sex: Male

DRUGS (7)
  1. BESIVANCE (BESIFLOXACIN OPHTHALMIC SUSPENSION) 0.6% [Suspect]
     Indication: POSTOPERATIVE CARE
     Dosage: DROP; FOUR TIMES A DAY; OPHTHALMIC
     Route: 047
     Dates: start: 20121101, end: 20121108
  2. LOTEMAX (LOTEPREDNOL ETABONATE OPHTHALMIC SUSPENSION 0.5%) [Suspect]
     Indication: POSTOPERATIVE CARE
     Dosage: DROP; FOUR TIMES A DAY; OPHTHALMIC
     Route: 047
     Dates: start: 20121101, end: 20121108
  3. LOTEMAX (LOTEPREDNOL ETABONATE OPHTHALMIC SUSPENSION 0.5%) [Suspect]
     Route: 047
     Dates: start: 20121122
  4. LIPOSIC OPHTHALMIC DROPS [Suspect]
     Indication: POSTOPERATIVE CARE
     Dosage: DROP; OPHTHALMIC
     Route: 047
     Dates: start: 20121101, end: 20121108
  5. PREDNISONE [Concomitant]
     Dosage: 1MG/KG
     Route: 048
     Dates: start: 20121109, end: 20121109
  6. PREDNISONE [Concomitant]
     Dosage: ONCE EVERY HOUR
     Route: 048
     Dates: start: 20121110
  7. PROPYLENE GLYCOL [Concomitant]
     Dosage: ONCE EVERY HOUR
     Route: 047
     Dates: start: 201211

REACTIONS (12)
  - Vision blurred [Recovered/Resolved]
  - Ulcerative keratitis [Recovered/Resolved]
  - Eye pain [Recovered/Resolved]
  - Ocular hyperaemia [Recovered/Resolved]
  - Eye irritation [Recovered/Resolved]
  - Corneal deposits [Recovered/Resolved]
  - Corneal infiltrates [Recovered/Resolved]
  - Diffuse lamellar keratitis [Recovered/Resolved]
  - Corneal striae [Recovered/Resolved]
  - Punctate keratitis [Recovered/Resolved]
  - Photophobia [Recovered/Resolved]
  - Off label use [Recovered/Resolved]
